FAERS Safety Report 9224229 (Version 1)
Quarter: 2013Q2

REPORT INFORMATION
  Report Type: Spontaneous
  Country: US (occurrence: US)
  Receive Date: 20130411
  Receipt Date: 20130411
  Transmission Date: 20140414
  Serious: No
  Sender: FDA-Public Use
  Company Number: US-009507513-1304USA004848

PATIENT
  Age: 21 Year
  Sex: Female
  Weight: 71.2 kg

DRUGS (1)
  1. IMPLANON [Suspect]
     Indication: CONTRACEPTION
     Dosage: EVERY 3 YEARS
     Route: 059
     Dates: start: 20110812

REACTIONS (6)
  - Asthenia [Unknown]
  - Metrorrhagia [Unknown]
  - Back pain [Unknown]
  - Headache [Unknown]
  - Depression [Unknown]
  - Weight increased [Unknown]
